FAERS Safety Report 15013493 (Version 1)
Quarter: 2018Q2

REPORT INFORMATION
  Report Type: Spontaneous
  Country: US (occurrence: US)
  Receive Date: 20180614
  Receipt Date: 20180614
  Transmission Date: 20180711
  Serious: No
  Sender: FDA-Public Use
  Company Number: US-ALLERGAN-1830529US

PATIENT
  Age: 28 Year
  Sex: Female
  Weight: 54.42 kg

DRUGS (1)
  1. TAYTULLA [Suspect]
     Active Substance: ETHINYL ESTRADIOL\NORETHINDRONE ACETATE
     Indication: CONTRACEPTION
     Dosage: 1 DF, QD
     Route: 048
     Dates: start: 201802

REACTIONS (2)
  - Drug ineffective [Unknown]
  - Pregnancy on oral contraceptive [Unknown]

NARRATIVE: CASE EVENT DATE: 20180611
